FAERS Safety Report 20138397 (Version 2)
Quarter: 2021Q4

REPORT INFORMATION
  Report Type: Spontaneous
  Country: PY (occurrence: PY)
  Receive Date: 20211202
  Receipt Date: 20211217
  Transmission Date: 20220304
  Serious: Yes (Other)
  Sender: FDA-Public Use
  Company Number: PY-LUPIN PHARMACEUTICALS INC.-2021-23510

PATIENT
  Age: 8 Year
  Sex: Female

DRUGS (8)
  1. CIPROFLOXACIN [Suspect]
     Active Substance: CIPROFLOXACIN
     Indication: CNS ventriculitis
     Dosage: UNK
     Route: 042
  2. CIPROFLOXACIN [Suspect]
     Active Substance: CIPROFLOXACIN
     Indication: Flavobacterium infection
  3. SULFAMETHOXAZOLE AND TRIMETHOPRIM [Suspect]
     Active Substance: SULFAMETHOXAZOLE\TRIMETHOPRIM
     Indication: CNS ventriculitis
     Dosage: UNK
     Route: 042
  4. SULFAMETHOXAZOLE AND TRIMETHOPRIM [Suspect]
     Active Substance: SULFAMETHOXAZOLE\TRIMETHOPRIM
     Indication: Flavobacterium infection
  5. MEROPENEM [Concomitant]
     Active Substance: MEROPENEM
     Indication: CNS ventriculitis
     Dosage: FOR AN AVERAGE OF 21 DAYS IN EACH OF THE TWO EPISODES
     Route: 065
  6. MEROPENEM [Concomitant]
     Active Substance: MEROPENEM
     Indication: Acinetobacter infection
  7. COLISTIN [Concomitant]
     Active Substance: COLISTIN
     Indication: CNS ventriculitis
     Dosage: FOR AN AVERAGE OF 21 DAYS IN EACH OF THE TWO EPISODES
     Route: 065
  8. COLISTIN [Concomitant]
     Active Substance: COLISTIN
     Indication: Acinetobacter infection

REACTIONS (1)
  - Multiple-drug resistance [Unknown]
